FAERS Safety Report 8393823-8 (Version None)
Quarter: 2012Q2

REPORT INFORMATION
  Report Type: 
  Country: None (occurrence: None)
  Receive Date: 20120530
  Receipt Date: 20120527
  Transmission Date: 20120825
  Serious: Yes (Other)
  Sender: FDA-Public Use
  Company Number: US-PFIZER INC-2012128342

PATIENT
  Sex: Male

DRUGS (1)
  1. CHANTIX [Suspect]
     Dosage: UNK

REACTIONS (10)
  - IRRITABILITY [None]
  - NAUSEA [None]
  - BONE PAIN [None]
  - SUICIDAL IDEATION [None]
  - OEDEMA PERIPHERAL [None]
  - DYSPNOEA [None]
  - MYALGIA [None]
  - VOMITING [None]
  - SWELLING [None]
  - SWELLING FACE [None]
